FAERS Safety Report 14281572 (Version 1)
Quarter: 2017Q4

REPORT INFORMATION
  Report Type: Spontaneous
  Country: US (occurrence: US)
  Receive Date: 20171213
  Receipt Date: 20171213
  Transmission Date: 20180321
  Serious: Yes (Life-Threatening, Other)
  Sender: FDA-Public Use
  Company Number: US-AMNEAL PHARMACEUTICALS-2017AMN01036

PATIENT
  Age: 58 Year
  Sex: Female

DRUGS (1)
  1. LIDOCAINE. [Suspect]
     Active Substance: LIDOCAINE
     Indication: NERVE BLOCK
     Dosage: UNK
     Route: 065

REACTIONS (8)
  - Carotid artery dissection [Unknown]
  - Headache [Unknown]
  - Eyelid ptosis [Recovering/Resolving]
  - Nausea [Unknown]
  - Miosis [Recovering/Resolving]
  - Hypertension [Recovering/Resolving]
  - Lethargy [Unknown]
  - Neck pain [Unknown]
